FAERS Safety Report 24111446 (Version 1)
Quarter: 2024Q3

REPORT INFORMATION
  Report Type: Spontaneous
  Country: FR (occurrence: FR)
  Receive Date: 20240718
  Receipt Date: 20240718
  Transmission Date: 20241016
  Serious: Yes (Death, Other)
  Sender: MERCK
  Company Number: None

PATIENT
  Age: 63 Year
  Sex: Female
  Weight: 94.6 kg

DRUGS (2)
  1. KEYTRUDA [Suspect]
     Active Substance: PEMBROLIZUMAB
     Indication: Endometrial cancer metastatic
     Dosage: C1
     Route: 042
     Dates: start: 20240529, end: 20240529
  2. LENVATINIB MESYLATE [Suspect]
     Active Substance: LENVATINIB MESYLATE
     Indication: Endometrial cancer metastatic
     Route: 048
     Dates: start: 20240529, end: 20240620

REACTIONS (2)
  - Myocarditis [Fatal]
  - Hepatic cytolysis [Fatal]

NARRATIVE: CASE EVENT DATE: 20240619
